FAERS Safety Report 23055552 (Version 1)
Quarter: 2023Q4

REPORT INFORMATION
  Report Type: Spontaneous
  Country: US (occurrence: None)
  Receive Date: 20231010
  Receipt Date: 20231010
  Transmission Date: 20240110
  Serious: Yes (Hospitalization)
  Sender: FDA-Public Use
  Company Number: None

PATIENT
  Age: 50 Year
  Sex: Female

DRUGS (16)
  1. XOLAIR [Suspect]
     Active Substance: OMALIZUMAB
     Indication: Asthma
     Route: 058
     Dates: end: 20210217
  2. ALBUTEROL AER HFA [Concomitant]
  3. AMLODIPINE [Concomitant]
     Active Substance: AMLODIPINE BESYLATE
  4. ASMANEX HFA AER [Concomitant]
  5. AZEL/FLUTIC SPR [Concomitant]
  6. AZITHROMYCIN [Concomitant]
     Active Substance: AZITHROMYCIN
  7. CHLORTHALIDONE [Concomitant]
     Active Substance: CHLORTHALIDONE
  8. FAMOTIDINE [Concomitant]
     Active Substance: FAMOTIDINE
  9. FLOVENT HFA AER [Concomitant]
  10. JUNEL FE 1/20 [Concomitant]
     Active Substance: ETHINYL ESTRADIOL\NORETHINDRONE ACETATE
  11. LIDOCAINE PAD [Concomitant]
  12. LISINOPRIL [Concomitant]
     Active Substance: LISINOPRIL
  13. LISINORIL [Concomitant]
  14. MOMETASONE SPR [Concomitant]
  15. OMEPRAZOLE [Concomitant]
     Active Substance: OMEPRAZOLE
  16. OZEMPIC [Concomitant]
     Active Substance: SEMAGLUTIDE

REACTIONS (3)
  - Gallbladder operation [None]
  - Therapy interrupted [None]
  - Asthma [None]

NARRATIVE: CASE EVENT DATE: 20230920
